FAERS Safety Report 17875131 (Version 2)
Quarter: 2020Q2

REPORT INFORMATION
  Report Type: Report from Study
  Country: IT (occurrence: IT)
  Receive Date: 20200609
  Receipt Date: 20200612
  Transmission Date: 20200714
  Serious: Yes (Other)
  Sender: FDA-Public Use
  Company Number: IT-SHIONOGI, INC-2020000302

PATIENT

DRUGS (43)
  1. DOXAZOSIN [Concomitant]
     Active Substance: DOXAZOSIN MESYLATE
     Indication: HYPERTENSION
     Dosage: 2 MG, BID
     Route: 048
     Dates: end: 20200526
  2. BISOPROLOL [Concomitant]
     Active Substance: BISOPROLOL
     Indication: HYPERTENSION
     Dosage: 2.5 MG, BID
     Route: 048
     Dates: end: 20200524
  3. URSODEOXYCHOLIC ACID [Concomitant]
     Active Substance: URSODIOL
     Indication: PRODUCT USED FOR UNKNOWN INDICATION
     Dosage: 300 MG, BID
     Route: 042
     Dates: start: 20200512
  4. IMMUNGLOBULIN [Concomitant]
     Active Substance: HUMAN IMMUNOGLOBULIN G
     Indication: PRODUCT USED FOR UNKNOWN INDICATION
     Dosage: 25 G, QD
     Route: 042
     Dates: start: 20200513, end: 20200517
  5. GENTAMYCINUM [Concomitant]
     Indication: ANTIBIOTIC THERAPY
     Dosage: 50 MG, QD
     Route: 042
     Dates: start: 20200525
  6. CORLOPAM [Concomitant]
     Active Substance: FENOLDOPAM MESYLATE
     Indication: PRODUCT USED FOR UNKNOWN INDICATION
     Dosage: 01. MG/KG/MIN IV CONTINOUS
     Route: 042
     Dates: start: 20200531
  7. INSULIN [Concomitant]
     Active Substance: INSULIN NOS
     Indication: MEDICAL ANABOLIC THERAPY
     Dosage: 5 [IU], TID
     Route: 058
     Dates: start: 20200530
  8. HYDROXYZINE [Concomitant]
     Active Substance: HYDROXYZINE HYDROCHLORIDE
     Indication: PRODUCT USED FOR UNKNOWN INDICATION
     Dosage: 2 ML, BID
     Route: 048
     Dates: start: 20200530
  9. BLINDED S-649266 [Suspect]
     Active Substance: CEFIDEROCOL
     Indication: EMPYEMA
  10. CLONAZEPAM. [Concomitant]
     Active Substance: CLONAZEPAM
     Indication: PRODUCT USED FOR UNKNOWN INDICATION
     Dosage: 10 DROPS TID
     Route: 048
  11. WARFARINUM [Concomitant]
     Indication: ANTICOAGULANT THERAPY
     Dosage: VARIABLE, OD
     Route: 048
     Dates: end: 20200516
  12. PANTOPRAZOLE [Concomitant]
     Active Substance: PANTOPRAZOLE
     Indication: GASTRITIS PROPHYLAXIS
     Dosage: 40 MG, BID
     Route: 042
  13. CEFTOLOZANE;TAZOBACTAM [Concomitant]
     Active Substance: CEFTOLOZANE SULFATE\TAZOBACTAM SODIUM
     Dosage: 3 G, TID
     Route: 042
     Dates: start: 20200511, end: 20200522
  14. FENTANEST [FENTANYL] [Concomitant]
     Indication: SEDATION
     Dosage: 0.7 MG/KH/H, IV CONTINOUS
     Route: 042
     Dates: start: 20200519, end: 20200525
  15. METHADONE [Concomitant]
     Active Substance: METHADONE HYDROCHLORIDE
     Indication: PRODUCT USED FOR UNKNOWN INDICATION
     Dosage: 5 MG, BID
     Route: 048
     Dates: start: 20200525, end: 20200531
  16. BLINDED S-649266 [Suspect]
     Active Substance: CEFIDEROCOL
     Indication: PNEUMONIA PSEUDOMONAL
  17. FUROSEMIDE. [Concomitant]
     Active Substance: FUROSEMIDE
     Indication: RENAL INJURY
     Dosage: 720 MG, QD
     Route: 042
  18. ALBUMINE [Concomitant]
     Active Substance: ALBUMIN HUMAN
     Indication: PARENTERAL NUTRITION
     Dosage: 20 G, BID
     Route: 042
  19. FENTANEST [FENTANYL] [Concomitant]
     Dosage: 0.7 MG/KH/H, IV CONTINOUS
     Route: 042
     Dates: start: 20200603
  20. CITALOPRAM [Concomitant]
     Active Substance: CITALOPRAM HYDROBROMIDE
     Indication: ANTIDEPRESSANT THERAPY
     Dosage: 20 MG, QD
     Route: 048
     Dates: start: 20200524
  21. FENOLDOPAM [Concomitant]
     Active Substance: FENOLDOPAM
     Indication: HYPERTENSION
     Dosage: 0.2 MG/KG/MIN OD
     Route: 042
     Dates: end: 20200504
  22. CALCIUM GLUCONATE. [Concomitant]
     Active Substance: CALCIUM GLUCONATE
     Indication: PRODUCT USED FOR UNKNOWN INDICATION
     Dosage: 1 G, BID
     Route: 042
  23. ERYTHROPOIETIN [Concomitant]
     Active Substance: ERYTHROPOIETIN
     Indication: ANAEMIA
     Dosage: 10000 IU 3 X WEEKLY
     Route: 058
  24. CALCIFEDIOL [Concomitant]
     Active Substance: CALCIFEDIOL
     Indication: PRODUCT USED FOR UNKNOWN INDICATION
     Dosage: 15 DROPS OD
     Route: 048
  25. THYROXINE [Concomitant]
     Active Substance: LEVOTHYROXINE
     Indication: HYPOTHYROIDISM
     Dosage: 50 UG, QD
     Route: 048
  26. QUETIAPINE. [Concomitant]
     Active Substance: QUETIAPINE
     Indication: DELIRIUM
     Dosage: 50 MG, TID
     Route: 048
     Dates: end: 20200520
  27. CEFTOLOZANE;TAZOBACTAM [Concomitant]
     Active Substance: CEFTOLOZANE SULFATE\TAZOBACTAM SODIUM
     Indication: ANTIBIOTIC THERAPY
     Dosage: 3 G, TID
     Route: 042
     Dates: start: 20200506, end: 20200509
  28. AVIBACTAM;CEFTAZIDIME [Concomitant]
     Active Substance: AVIBACTAM SODIUM\CEFTAZIDIME
     Indication: ANTIBIOTIC THERAPY
     Dosage: 2.5 G, TID
     Route: 042
     Dates: start: 20200509, end: 20200511
  29. AMPICILLIN [Concomitant]
     Active Substance: AMPICILLIN
     Indication: ANTIBIOTIC THERAPY
     Dosage: 3 G, Q 6H
     Route: 042
     Dates: start: 20200512, end: 20200526
  30. DIGOXIN. [Concomitant]
     Active Substance: DIGOXIN
     Indication: ATRIAL FIBRILLATION
     Dosage: 0.25 MG, QD
     Route: 042
     Dates: start: 20200530
  31. BLINDED S-649266 [Suspect]
     Active Substance: CEFIDEROCOL
     Indication: PNEUMONIA
     Dosage: 2 G, TID
     Route: 042
     Dates: start: 20200522, end: 20200603
  32. ACETYLCYSTEINE. [Concomitant]
     Active Substance: ACETYLCYSTEINE
     Indication: SPUTUM ABNORMAL
     Dosage: 600 MG, BID
     Route: 042
  33. METOCLOPRAMIDE. [Concomitant]
     Active Substance: METOCLOPRAMIDE
     Indication: GASTROINTESTINAL MOTILITY DISORDER
     Dosage: 10 MG, TID
     Route: 042
  34. AMITRIPTYLINE [Concomitant]
     Active Substance: AMITRIPTYLINE
     Indication: PRODUCT USED FOR UNKNOWN INDICATION
     Dosage: 5 DROPS,  BID
     Route: 048
  35. PERPHENAZINE. [Concomitant]
     Active Substance: PERPHENAZINE
     Indication: DELIRIUM
     Dosage: 2 MG, QD
     Route: 048
  36. METOLAZONE. [Concomitant]
     Active Substance: METOLAZONE
     Indication: DIURETIC THERAPY
     Dosage: 5 MG, BID
     Route: 048
     Dates: start: 20200505
  37. AMPHOTERICIN B. [Concomitant]
     Active Substance: AMPHOTERICIN B
     Indication: SYSTEMIC CANDIDA
     Dosage: 250 MG, QD
     Route: 042
     Dates: start: 20200421, end: 20200522
  38. CANRENOATE POTASSIUM [Concomitant]
     Active Substance: CANRENOATE POTASSIUM
     Indication: PRODUCT USED FOR UNKNOWN INDICATION
     Dosage: 200 MG, QD
     Route: 042
  39. CASPOFUNGIN [Concomitant]
     Active Substance: CASPOFUNGIN
     Indication: SYSTEMIC CANDIDA
     Dosage: 50 MG, QD
     Route: 042
     Dates: start: 20200504, end: 20200527
  40. DAPTOMYCIN. [Concomitant]
     Active Substance: DAPTOMYCIN
     Indication: ANTIBIOTIC THERAPY
     Dosage: 800 MG Q 48H
     Route: 042
     Dates: start: 20200512, end: 20200519
  41. FOSFOMYCIN [Concomitant]
     Active Substance: FOSFOMYCIN
     Indication: ANTIBIOTIC THERAPY
     Dosage: 6 G, Q 6H
     Route: 042
     Dates: start: 20200512
  42. NOREPINEPHRINE. [Concomitant]
     Active Substance: NOREPINEPHRINE
     Indication: CARDIAC CONTRACTILITY MODULATION THERAPY
     Dosage: VARIABLE, IV CONTINOUS
     Route: 042
     Dates: start: 20200519, end: 20200522
  43. SOMATOSTATIN [Concomitant]
     Active Substance: SOMATOSTATIN
     Indication: GASTROINTESTINAL HAEMORRHAGE
     Dosage: 3.5 MG/KG/H, IV CONTINOUS
     Route: 042
     Dates: start: 20200521

REACTIONS (1)
  - Seizure [Recovered/Resolved]

NARRATIVE: CASE EVENT DATE: 20200603
